FAERS Safety Report 18788341 (Version 1)
Quarter: 2021Q1

REPORT INFORMATION
  Report Type: Other
  Country: US (occurrence: US)
  Receive Date: 20210125
  Receipt Date: 20210125
  Transmission Date: 20210419
  Serious: No
  Sender: FDA-Public Use
  Company Number: US-ACORDA-ACO_163812_2020

PATIENT
  Sex: Male

DRUGS (1)
  1. AMPYRA [Suspect]
     Active Substance: DALFAMPRIDINE
     Indication: PRODUCT USED FOR UNKNOWN INDICATION
     Dosage: 10 MILLIGRAM, BID
     Route: 048
     Dates: start: 20150327

REACTIONS (11)
  - Pain in extremity [Unknown]
  - Catheter site pain [Unknown]
  - Paraesthesia [Unknown]
  - Cataract [Unknown]
  - Incontinence [Unknown]
  - Loss of personal independence in daily activities [Unknown]
  - Depression [Unknown]
  - Therapy cessation [Recovered/Resolved]
  - Mobility decreased [Not Recovered/Not Resolved]
  - Hypoaesthesia [Unknown]
  - Balance disorder [Unknown]
